FAERS Safety Report 4855599-8 (Version None)
Quarter: 2005Q4

REPORT INFORMATION
  Report Type: 
  Country: None (occurrence: None)
  Receive Date: 20051214
  Receipt Date: 20051128
  Transmission Date: 20060501
  Serious: Yes (Hospitalization)
  Sender: FDA-Public Use
  Company Number: 2005BI021963

PATIENT
  Sex: Female

DRUGS (4)
  1. ZEVALIN [Suspect]
     Indication: NON-HODGKIN'S LYMPHOMA
     Dosage: 0.4 MCI/KG; 1X; IV
     Route: 042
     Dates: start: 20030925, end: 20030925
  2. ZEVALIN [Suspect]
     Indication: NON-HODGKIN'S LYMPHOMA
     Dosage: 0.4 MCI/KG; 1X; IV
     Route: 042
     Dates: start: 20031002, end: 20031002
  3. RITUXIMAB [Concomitant]
  4. RITUXIMAB [Concomitant]

REACTIONS (1)
  - UTERINE PROLAPSE [None]
